FAERS Safety Report 12921321 (Version 3)
Quarter: 2017Q1

REPORT INFORMATION
  Report Type: Spontaneous
  Country: GB (occurrence: GB)
  Receive Date: 20161107
  Receipt Date: 20170130
  Transmission Date: 20170428
  Serious: Yes (Hospitalization)
  Sender: FDA-Public Use
  Company Number: GB-TEVA-704386ACC

PATIENT
  Age: 60 Year
  Sex: Female

DRUGS (9)
  1. ESCITALOPRAM [Suspect]
     Active Substance: ESCITALOPRAM OXALATE
     Route: 065
  2. AMLODIPINE [Concomitant]
     Active Substance: AMLODIPINE BESYLATE
     Dosage: 10 MILLIGRAM DAILY;
     Route: 065
  3. CETRABEN CREAM [Concomitant]
     Route: 065
  4. PROPRANOLOL [Suspect]
     Active Substance: PROPRANOLOL HYDROCHLORIDE
     Dosage: 40 MILLIGRAM DAILY;
     Route: 048
     Dates: start: 201501, end: 201610
  5. CAPASAL THERAPEUTIC SHAMPOO [Concomitant]
     Route: 065
  6. LORATADINE. [Concomitant]
     Active Substance: LORATADINE
     Route: 065
  7. DERMOL 200 SHOWER EMOLLIENT [Concomitant]
     Route: 065
  8. DOVOBET GEL [Concomitant]
     Route: 065
  9. CREPE BANDAGE BP [Concomitant]

REACTIONS (5)
  - Psoriasis [Unknown]
  - Loss of consciousness [Unknown]
  - Feeling jittery [Unknown]
  - Hot flush [Unknown]
  - Palpitations [Unknown]

NARRATIVE: CASE EVENT DATE: 20160704
